FAERS Safety Report 9752112 (Version 1)
Quarter: 2013Q4

REPORT INFORMATION
  Report Type: Report from Study
  Country: IL (occurrence: IL)
  Receive Date: 20131213
  Receipt Date: 20131213
  Transmission Date: 20140711
  Serious: Yes (Other)
  Sender: FDA-Public Use
  Company Number: PHHY2013IL145756

PATIENT
  Age: 69 Year
  Sex: Male

DRUGS (2)
  1. SANDOSTATIN LAR [Suspect]
     Indication: ACROMEGALY
     Dosage: 30 MG, Q3W
  2. SANDOSTATIN LAR [Suspect]
     Dosage: 30 MG, Q3W
     Dates: start: 20131210

REACTIONS (4)
  - Chronic obstructive pulmonary disease [Unknown]
  - Gout [Unknown]
  - Joint swelling [Unknown]
  - Dysstasia [Unknown]
